FAERS Safety Report 23979532 (Version 1)
Quarter: 2024Q2

REPORT INFORMATION
  Report Type: Spontaneous
  Country: US (occurrence: US)
  Receive Date: 20240616
  Receipt Date: 20240616
  Transmission Date: 20240716
  Serious: No
  Sender: FDA-Public Use
  Company Number: US-TORRENT-00013609

PATIENT
  Age: 39 Year
  Sex: Male

DRUGS (1)
  1. TIOPRONIN [Suspect]
     Active Substance: TIOPRONIN
     Indication: Cystinuria
     Dosage: TID
     Route: 048
     Dates: start: 20240412, end: 20240603

REACTIONS (1)
  - Abdominal discomfort [Recovered/Resolved]
